FAERS Safety Report 17565322 (Version 1)
Quarter: 2020Q1

REPORT INFORMATION
  Report Type: Spontaneous
  Country: US (occurrence: US)
  Receive Date: 20200313
  Receipt Date: 20200313
  Transmission Date: 20200409
  Serious: Yes (Hospitalization)
  Sender: FDA-Public Use
  Company Number: None

PATIENT
  Age: 42 Year
  Sex: Female
  Weight: 60.9 kg

DRUGS (13)
  1. DECADRON [Concomitant]
     Active Substance: DEXAMETHASONE
  2. DIFLUCAN [Concomitant]
     Active Substance: FLUCONAZOLE
  3. FOSAPREPITAN [Concomitant]
  4. PHENERGAN [Concomitant]
     Active Substance: PROMETHAZINE HYDROCHLORIDE
  5. BENADRYL [Concomitant]
     Active Substance: DIPHENHYDRAMINE HYDROCHLORIDE
  6. PEPCID [Concomitant]
     Active Substance: FAMOTIDINE
  7. PLAQUENIL [Concomitant]
     Active Substance: HYDROXYCHLOROQUINE SULFATE
  8. CALVERIDOL [Concomitant]
  9. ZANTAC [Concomitant]
     Active Substance: RANITIDINE HYDROCHLORIDE
  10. ZOFRAN [Concomitant]
     Active Substance: ONDANSETRON HYDROCHLORIDE
  11. CISPLATIN. [Suspect]
     Active Substance: CISPLATIN
     Dates: end: 20200227
  12. ZYPREXA [Concomitant]
     Active Substance: OLANZAPINE
  13. FAMOTIDINE. [Concomitant]
     Active Substance: FAMOTIDINE

REACTIONS (8)
  - Candida infection [None]
  - Nausea [None]
  - Dehydration [None]
  - Paraesthesia [None]
  - Feeding disorder [None]
  - Dysphagia [None]
  - Mucosal inflammation [None]
  - Vomiting [None]

NARRATIVE: CASE EVENT DATE: 20200228
